FAERS Safety Report 15770221 (Version 17)
Quarter: 2022Q3

REPORT INFORMATION
  Report Type: Spontaneous
  Country: US (occurrence: US)
  Receive Date: 20181228
  Receipt Date: 20220922
  Transmission Date: 20221027
  Serious: Yes (Other)
  Sender: FDA-Public Use
  Company Number: US-PFIZER INC-2018490187

PATIENT
  Age: 78 Year
  Sex: Female
  Weight: 74.84 kg

DRUGS (15)
  1. PREMARIN [Suspect]
     Active Substance: ESTROGENS, CONJUGATED
     Indication: Vaginal infection
     Dosage: 0.625 MG
     Route: 067
  2. PREMARIN [Suspect]
     Active Substance: ESTROGENS, CONJUGATED
     Dosage: UNK, 1X/DAY
     Dates: start: 201811
  3. PREMARIN [Suspect]
     Active Substance: ESTROGENS, CONJUGATED
     Dosage: UNK (THREE TIMES A WEEK ON MONDAY, WEDNESDAY, AND FRIDAY)
     Route: 067
  4. PREMARIN [Suspect]
     Active Substance: ESTROGENS, CONJUGATED
     Dosage: UNK
  5. INSULIN NOS [Concomitant]
     Active Substance: INSULIN NOS
     Indication: Diabetes mellitus
     Dosage: BASAL RATE PUMP
     Dates: start: 2004
  6. FUROSEMIDE [Concomitant]
     Active Substance: FUROSEMIDE
     Dosage: 80 MG, 1X/DAY
  7. ROSUVASTATIN CALCIUM [Concomitant]
     Active Substance: ROSUVASTATIN CALCIUM
     Dosage: 10 MG, 1X/DAY
  8. LISINOPRIL [Concomitant]
     Active Substance: LISINOPRIL
     Dosage: 10 MG, 1X/DAY
  9. BRILINTA [Concomitant]
     Active Substance: TICAGRELOR
     Indication: Cardiac disorder
     Dosage: 90 MG, 2X/DAY
  10. METOPROLOL [Concomitant]
     Active Substance: METOPROLOL
     Dosage: 25 MG, 1X/DAY
  11. BREO ELLIPTA [Concomitant]
     Active Substance: FLUTICASONE FUROATE\VILANTEROL TRIFENATATE
     Indication: Asthma
     Dosage: 100-25
  12. INSULIN LISPRO [Concomitant]
     Active Substance: INSULIN LISPRO
     Dosage: UNK
  13. CLONIDINE [Concomitant]
     Active Substance: CLONIDINE
     Indication: Blood pressure measurement
     Dosage: UNK, 2X/DAY (0.2 TWICE DAILY)
  14. ALLOPURINOL [Concomitant]
     Active Substance: ALLOPURINOL
     Indication: Gout
     Dosage: 100 MG, 1X/DAY (ONE DOSE DAILY)
  15. ELCIT [Concomitant]
     Dosage: 80 MG, 1X/DAY

REACTIONS (15)
  - Bladder cancer [Unknown]
  - Off label use [Unknown]
  - Product dispensing error [Unknown]
  - Product prescribing error [Unknown]
  - Product prescribing issue [Unknown]
  - Feeling abnormal [Unknown]
  - Pain in extremity [Unknown]
  - Self esteem decreased [Unknown]
  - Rash [Unknown]
  - Pain [Unknown]
  - Pruritus [Unknown]
  - Feeling jittery [Unknown]
  - Nervousness [Unknown]
  - Fungal infection [Unknown]
  - Infection [Unknown]
